FAERS Safety Report 4630622-4 (Version None)
Quarter: 2005Q2

REPORT INFORMATION
  Report Type: 
  Country: None (occurrence: None)
  Receive Date: 20050408
  Receipt Date: 20050330
  Transmission Date: 20051028
  Serious: Yes (Hospitalization)
  Sender: FDA-Public Use
  Company Number: US-BRISTOL-MYERS SQUIBB COMPANY-12915914

PATIENT
  Age: 47 Year
  Sex: Male

DRUGS (5)
  1. CISPLATIN [Suspect]
     Indication: NEOPLASM MALIGNANT
     Route: 042
     Dates: start: 20040514, end: 20040514
  2. NEXIUM [Concomitant]
     Indication: DYSPEPSIA
     Route: 048
     Dates: start: 20040201
  3. ALPRAZOLAM [Concomitant]
     Indication: ANXIETY
     Route: 048
     Dates: start: 20040401
  4. TYLENOL W/ CODEINE [Concomitant]
     Indication: PAIN
     Dates: start: 20040523, end: 20040531
  5. PROCHLORPERAZINE EDISYLATE [Concomitant]
     Indication: NAUSEA
     Route: 048
     Dates: start: 20040513

REACTIONS (4)
  - ABDOMINAL PAIN [None]
  - NAUSEA [None]
  - PYREXIA [None]
  - VOMITING [None]
